FAERS Safety Report 8774373 (Version 1)
Quarter: 2012Q4

REPORT INFORMATION
  Report Type: 
  Country: US (occurrence: US)
  Receive Date: 20120907
  Receipt Date: 20120907
  Transmission Date: 20130627
  Serious: No
  Sender: FDA-Public Use
  Company Number: US-009507513-1208USA009845

PATIENT

DRUGS (3)
  1. PEGINTRON [Suspect]
     Indication: HEPATITIS C
     Dosage: UNK
     Route: 058
     Dates: start: 20120818
  2. VICTRELIS [Suspect]
     Indication: HEPATITIS C
     Dosage: UNK
     Route: 048
     Dates: start: 2012
  3. RIBASPHERE [Suspect]
     Indication: HEPATITIS C
     Dosage: UNK
     Route: 048
     Dates: start: 20120818

REACTIONS (7)
  - Thirst [Unknown]
  - Hyperhidrosis [Unknown]
  - Hot flush [Unknown]
  - Myalgia [Unknown]
  - Arthralgia [Unknown]
  - Chills [Unknown]
  - Pyrexia [Unknown]
